FAERS Safety Report 21719506 (Version 1)
Quarter: 2022Q4

REPORT INFORMATION
  Report Type: Spontaneous
  Country: US (occurrence: US)
  Receive Date: 20221213
  Receipt Date: 20221213
  Transmission Date: 20230113
  Serious: No
  Sender: FDA-Public Use
  Company Number: MIQ-11302021-2963

PATIENT

DRUGS (2)
  1. IVERMECTIN [Suspect]
     Active Substance: IVERMECTIN
     Indication: Helminthic infection
     Dosage: THREE TABLETS
     Route: 048
     Dates: start: 20211106, end: 20211106
  2. IVERMECTIN [Suspect]
     Active Substance: IVERMECTIN
     Dosage: THREE TABLETS
     Route: 048
     Dates: start: 20211116, end: 20211116

REACTIONS (3)
  - Unevaluable event [Unknown]
  - Dizziness [Recovered/Resolved]
  - Drug ineffective [Unknown]

NARRATIVE: CASE EVENT DATE: 20211101
